FAERS Safety Report 13889476 (Version 1)
Quarter: 2017Q3

REPORT INFORMATION
  Report Type: Spontaneous
  Country: US (occurrence: US)
  Receive Date: 20170816
  Receipt Date: 20170816
  Transmission Date: 20171127
  Serious: Yes (Hospitalization)
  Sender: FDA-Public Use
  Company Number: None

PATIENT
  Age: 81 Year
  Sex: Female
  Weight: 58.51 kg

DRUGS (12)
  1. ALPRAZOLAM. [Concomitant]
     Active Substance: ALPRAZOLAM
  2. MULTIVITAMIN [Concomitant]
     Active Substance: VITAMINS
  3. LIPITOR [Concomitant]
     Active Substance: ATORVASTATIN CALCIUM
  4. TARCEVA [Suspect]
     Active Substance: ERLOTINIB HYDROCHLORIDE
     Indication: LUNG NEOPLASM MALIGNANT
     Route: 048
     Dates: start: 20170615
  5. SYNTHROID [Concomitant]
     Active Substance: LEVOTHYROXINE SODIUM
  6. ASPIRIN. [Concomitant]
     Active Substance: ASPIRIN
  7. COLCRYS [Concomitant]
     Active Substance: COLCHICINE
  8. MEGESTROL [Concomitant]
     Active Substance: MEGESTROL
  9. CARDIZEM [Concomitant]
     Active Substance: DILTIAZEM HYDROCHLORIDE
  10. FISH OIL [Concomitant]
     Active Substance: FISH OIL
  11. LASIX [Concomitant]
     Active Substance: FUROSEMIDE
  12. MORPHINE [Concomitant]
     Active Substance: MORPHINE

REACTIONS (6)
  - Gout [None]
  - Diarrhoea [None]
  - Oedema peripheral [None]
  - Anosmia [None]
  - Decreased appetite [None]
  - Back pain [None]
